FAERS Safety Report 6569214-9 (Version None)
Quarter: 2010Q1

REPORT INFORMATION
  Report Type: 
  Country: None (occurrence: None)
  Receive Date: 20100201
  Receipt Date: 20100201
  Transmission Date: 20100710
  Serious: Yes (Hospitalization)
  Sender: FDA-Public Use
  Company Number: None

PATIENT
  Age: 56 Year
  Sex: Female
  Weight: 81.6475 kg

DRUGS (3)
  1. TYLENOL (CAPLET) [Suspect]
     Indication: ARTHRALGIA
     Dosage: 500MGX2CAPLETS @8:45AM INJ
     Dates: start: 20100115, end: 20100115
  2. TYLENOL (CAPLET) [Suspect]
     Indication: BACK PAIN
     Dosage: 500MGX2CAPLETS @8:45AM INJ
     Dates: start: 20100115, end: 20100115
  3. TYLENOL (CAPLET) [Suspect]
     Indication: MYALGIA
     Dosage: 500MGX2CAPLETS @8:45AM INJ
     Dates: start: 20100115, end: 20100115

REACTIONS (14)
  - ABDOMINAL PAIN UPPER [None]
  - ASTHENIA [None]
  - BLOOD PRESSURE INCREASED [None]
  - CONDITION AGGRAVATED [None]
  - DIARRHOEA [None]
  - DIZZINESS [None]
  - FEELING ABNORMAL [None]
  - MALAISE [None]
  - NAUSEA [None]
  - PAIN [None]
  - PALPITATIONS [None]
  - SYSTEMIC LUPUS ERYTHEMATOSUS [None]
  - VISION BLURRED [None]
  - VOMITING [None]
